FAERS Safety Report 7200888-5 (Version None)
Quarter: 2010Q4

REPORT INFORMATION
  Report Type: 
  Country: None (occurrence: None)
  Receive Date: 20101228
  Receipt Date: 20101222
  Transmission Date: 20110411
  Serious: Yes (Other)
  Sender: FDA-Public Use
  Company Number: JP-ABBOTT-10P-087-0649068-00

PATIENT
  Sex: Male
  Weight: 59.6 kg

DRUGS (9)
  1. HUMIRA [Suspect]
     Indication: RHEUMATOID ARTHRITIS
     Route: 058
     Dates: start: 20091208, end: 20100303
  2. MIZORIBINE [Concomitant]
     Indication: RHEUMATOID ARTHRITIS
     Route: 048
  3. MIZORIBINE [Concomitant]
     Indication: SYSTEMIC LUPUS ERYTHEMATOSUS
  4. PREDNISOLONE [Concomitant]
     Indication: RHEUMATOID ARTHRITIS
     Route: 048
     Dates: end: 20100308
  5. ITRACONAZOLE [Concomitant]
     Indication: PRODUCT USED FOR UNKNOWN INDICATION
     Route: 048
  6. LANSOPRAZOLE [Concomitant]
     Indication: GASTRITIS PROPHYLAXIS
     Route: 048
  7. ISONIAZID [Concomitant]
     Indication: ANTIBIOTIC PROPHYLAXIS
     Route: 048
  8. PYRIDOXAL PHOSPHATE HYDRATE [Concomitant]
     Indication: PROPHYLAXIS
     Route: 048
  9. PYRIDOXAL PHOSPHATE HYDRATE [Concomitant]
     Indication: ADVERSE DRUG REACTION

REACTIONS (2)
  - NEUTROPENIA [None]
  - SYSTEMIC LUPUS ERYTHEMATOSUS [None]
